FAERS Safety Report 20624686 (Version 1)
Quarter: 2022Q1

REPORT INFORMATION
  Report Type: Spontaneous
  Country: IR (occurrence: IR)
  Receive Date: 20220323
  Receipt Date: 20220323
  Transmission Date: 20220423
  Serious: Yes (Other)
  Sender: FDA-Public Use
  Company Number: IR-LOTUS-2022-LOTUS-048671

PATIENT
  Age: 64 Year
  Sex: Female

DRUGS (2)
  1. METHOTREXATE [Suspect]
     Active Substance: METHOTREXATE
     Indication: Diffuse large B-cell lymphoma
  2. RITUXIMAB [Suspect]
     Active Substance: RITUXIMAB
     Indication: Diffuse large B-cell lymphoma

REACTIONS (5)
  - Diffuse large B-cell lymphoma [Recovered/Resolved]
  - Disease progression [Recovered/Resolved]
  - Therapy partial responder [Unknown]
  - Dizziness [Unknown]
  - Cognitive disorder [Unknown]
